FAERS Safety Report 19914419 (Version 2)
Quarter: 2021Q4

REPORT INFORMATION
  Report Type: Spontaneous
  Country: US (occurrence: None)
  Receive Date: 20211004
  Receipt Date: 20211111
  Transmission Date: 20220303
  Serious: No
  Sender: FDA-Public Use
  Company Number: 2021A724740

PATIENT
  Sex: Female
  Weight: 65.8 kg

DRUGS (1)
  1. BUDESONIDE\FORMOTEROL\GLYCOPYRRONIUM [Suspect]
     Active Substance: BUDESONIDE\FORMOTEROL\GLYCOPYRRONIUM
     Indication: Asthma
     Dosage: 120 INHALATIONS, INHALATION, 2 PUFFS TWICE DAILY
     Route: 055
     Dates: start: 202107

REACTIONS (7)
  - Dyspnoea [Unknown]
  - Cough [Unknown]
  - Corrective lens user [Unknown]
  - Device use issue [Unknown]
  - Product dose omission issue [Unknown]
  - Off label use [Not Recovered/Not Resolved]
  - Device malfunction [Unknown]
